FAERS Safety Report 21211977 (Version 2)
Quarter: 2022Q4

REPORT INFORMATION
  Report Type: Spontaneous
  Country: FR (occurrence: FR)
  Receive Date: 20220815
  Receipt Date: 20221014
  Transmission Date: 20230112
  Serious: Yes (Other)
  Sender: FDA-Public Use
  Company Number: FR-VIIV HEALTHCARE ULC-FR2022EME114714

PATIENT
  Age: 29 Year
  Sex: Female

DRUGS (7)
  1. NORVIR [Suspect]
     Active Substance: RITONAVIR
     Indication: HIV infection
     Route: 048
     Dates: start: 20200801
  2. KIVEXA [Suspect]
     Active Substance: ABACAVIR SULFATE\LAMIVUDINE
     Indication: HIV infection
     Route: 065
     Dates: start: 20200201
  3. FUZEON [Suspect]
     Active Substance: ENFUVIRTIDE
     Indication: HIV infection
     Route: 065
  4. PREZISTA [Suspect]
     Active Substance: DARUNAVIR ETHANOLATE
     Indication: HIV infection
     Route: 065
     Dates: start: 20200201
  5. ISENTRESS [Suspect]
     Active Substance: RALTEGRAVIR POTASSIUM
     Indication: HIV infection
     Route: 048
     Dates: start: 20200801
  6. ABACAVIR SULFATE [Suspect]
     Active Substance: ABACAVIR SULFATE
     Indication: HIV infection
     Route: 048
     Dates: start: 20200801
  7. DARUNAVIR [Suspect]
     Active Substance: DARUNAVIR
     Indication: HIV infection
     Route: 048
     Dates: start: 20220801

REACTIONS (5)
  - Pathogen resistance [Unknown]
  - Treatment noncompliance [Unknown]
  - Virologic failure [Unknown]
  - Viral mutation identified [Unknown]
  - Maternal exposure during pregnancy [Unknown]

NARRATIVE: CASE EVENT DATE: 20220501
